FAERS Safety Report 18036429 (Version 1)
Quarter: 2020Q3

REPORT INFORMATION
  Report Type: Spontaneous
  Country: FR (occurrence: FR)
  Receive Date: 20200717
  Receipt Date: 20200717
  Transmission Date: 20201103
  Serious: Yes (Hospitalization)
  Sender: FDA-Public Use
  Company Number: FR-SUN PHARMACEUTICAL INDUSTRIES LTD-2020RR-254024

PATIENT
  Age: 66 Year
  Sex: Female

DRUGS (9)
  1. VERZENIO [Suspect]
     Active Substance: ABEMACICLIB
     Indication: BREAST CANCER
     Dosage: 300 MILLIGRAM, DAILY
     Route: 048
     Dates: start: 20191130
  2. ATENOLOL. [Concomitant]
     Active Substance: ATENOLOL
     Indication: HYPERTENSION
     Dosage: 50 MG MATIN ET SOIR
     Route: 048
  3. CALCIUM (CARBONATE DE) [Suspect]
     Active Substance: CALCIUM CARBONATE
     Indication: METASTATIC BONE DISEASE PROPHYLAXIS
     Dosage: 500 MILLIGRAM, DAILY
     Route: 048
     Dates: start: 20191130
  4. FEMARA [Suspect]
     Active Substance: LETROZOLE
     Indication: BREAST CANCER
     Dosage: 2.5 MILLIGRAM, DAILY
     Route: 048
     Dates: start: 20191130
  5. IRBESARTAN. [Concomitant]
     Active Substance: IRBESARTAN
     Indication: HYPERTENSION
     Dosage: 150 MG LE MATIN
     Route: 048
  6. DAFALGAN CODEINE [Concomitant]
     Active Substance: ACETAMINOPHEN\CODEINE PHOSPHATE
     Indication: PAIN
     Dosage: 3 A 4/JOUR ()
     Route: 048
  7. XGEVA [Suspect]
     Active Substance: DENOSUMAB
     Indication: METASTATIC BONE DISEASE PROPHYLAXIS
     Dosage: 120 MILLIGRAM, MONTHLY
     Route: 058
     Dates: start: 20191130
  8. SMECTA [Suspect]
     Active Substance: MONTMORILLONITE
     Indication: DIARRHOEA
     Dosage: 1 A 3 SACHETS PAR JOUR
     Route: 048
     Dates: start: 20191130
  9. LOPERAMIDE [Suspect]
     Active Substance: LOPERAMIDE
     Indication: DIARRHOEA
     Dosage: 1 APRES CHAQUE SELLE LIQUIDE (MAX 4/JOUR) ; AS NECESSARY
     Route: 048
     Dates: start: 20191130

REACTIONS (1)
  - Pulmonary embolism [Not Recovered/Not Resolved]

NARRATIVE: CASE EVENT DATE: 20200405
